FAERS Safety Report 8581899-4 (Version None)
Quarter: 2012Q3

REPORT INFORMATION
  Report Type: 
  Country: None (occurrence: None)
  Receive Date: 20120809
  Receipt Date: 20120730
  Transmission Date: 20120928
  Serious: Yes (Other)
  Sender: FDA-Public Use
  Company Number: US-ELI_LILLY_AND_COMPANY-US201208000404

PATIENT
  Sex: Female

DRUGS (4)
  1. HUMALOG MIX 75/25 [Suspect]
     Dosage: 24 U, BID
  2. HUMALOG MIX 75/25 [Suspect]
     Indication: TYPE 2 DIABETES MELLITUS
     Dosage: 24 U, BID
     Dates: start: 20020101
  3. LEXAPRO [Concomitant]
  4. HUMALOG MIX 75/25 [Suspect]
     Dosage: 24 U, BID

REACTIONS (6)
  - MEMORY IMPAIRMENT [None]
  - TREMOR [None]
  - PARKINSON'S DISEASE [None]
  - MEDICATION ERROR [None]
  - DRUG DOSE OMISSION [None]
  - WEIGHT DECREASED [None]
